FAERS Safety Report 10538998 (Version 1)
Quarter: 2014Q4

REPORT INFORMATION
  Report Type: Spontaneous
  Country: US (occurrence: US)
  Receive Date: 20141023
  Receipt Date: 20141023
  Transmission Date: 20150529
  Serious: Yes (Hospitalization, Other)
  Sender: FDA-Public Use
  Company Number: US-ELI_LILLY_AND_COMPANY-US201410005256

PATIENT
  Age: 77 Year
  Sex: Male

DRUGS (2)
  1. HUMALOG [Suspect]
     Active Substance: INSULIN LISPRO
     Dosage: 26 U, EACH EVENING
     Route: 065
  2. HUMALOG [Suspect]
     Active Substance: INSULIN LISPRO
     Indication: TYPE 2 DIABETES MELLITUS
     Dosage: 24 U, EACH MORNING
     Route: 065

REACTIONS (10)
  - Hallucination [Unknown]
  - Hallucination [Unknown]
  - Parkinson^s disease [Unknown]
  - Blood glucose increased [Unknown]
  - Confusional state [Unknown]
  - Insomnia [Unknown]
  - Dementia [Unknown]
  - Type 2 diabetes mellitus [Unknown]
  - Blood glucose abnormal [Unknown]
  - Hypersomnia [Unknown]

NARRATIVE: CASE EVENT DATE: 201409
